FAERS Safety Report 18986128 (Version 1)
Quarter: 2021Q1

REPORT INFORMATION
  Report Type: Spontaneous
  Country: US (occurrence: US)
  Receive Date: 20210309
  Receipt Date: 20210309
  Transmission Date: 20210420
  Serious: No
  Sender: FDA-Public Use
  Company Number: US-HIKMA PHARMACEUTICALS USA INC.-US-H14001-20-05363

PATIENT
  Sex: Female

DRUGS (1)
  1. LIDOCAINE HYDROCHLORIDE. [Suspect]
     Active Substance: LIDOCAINE HYDROCHLORIDE
     Indication: NERVE BLOCK
     Dosage: 10MG IN 1 ML

REACTIONS (9)
  - Nausea [Unknown]
  - Vomiting [Unknown]
  - Injection site pain [Unknown]
  - Visual impairment [Unknown]
  - Photophobia [Unknown]
  - Neck pain [Unknown]
  - Swelling [Unknown]
  - Dizziness [Unknown]
  - Headache [Unknown]
